FAERS Safety Report 10178028 (Version 2)
Quarter: 2014Q2

REPORT INFORMATION
  Report Type: Spontaneous
  Country: IT (occurrence: IT)
  Receive Date: 20140517
  Receipt Date: 20140520
  Transmission Date: 20141212
  Serious: Yes (Other)
  Sender: FDA-Public Use
  Company Number: IT-ACCORD-023725

PATIENT
  Age: 73 Year
  Sex: Female

DRUGS (4)
  1. LEDERFOLIN [Concomitant]
     Dosage: 175 MG, 1AMPOULE
     Route: 042
  2. OXALIPLATINO SUN [Suspect]
     Indication: PANCREATIC CARCINOMA
     Dosage: 5 MG/ML, 5 GLASS AMPOULES 100 MG/20 ML. ( ATC: L01XA03 )
     Route: 042
     Dates: start: 20140331
  3. FLUOROURACIL [Suspect]
     Indication: PANCREATIC CARCINOMA
     Route: 041
     Dates: start: 20140331
  4. IRINOTECAN [Suspect]
     Indication: PANCREATIC CARCINOMA
     Route: 042
     Dates: start: 20140331

REACTIONS (6)
  - Leukopenia [Recovered/Resolved]
  - Neutropenia [Recovered/Resolved]
  - Pyrexia [Recovered/Resolved]
  - Transaminases increased [Recovered/Resolved]
  - Off label use [Unknown]
  - Blood bilirubin increased [Recovered/Resolved]
